FAERS Safety Report 4607730-7 (Version None)
Quarter: 2005Q1

REPORT INFORMATION
  Report Type: 
  Country: None (occurrence: None)
  Receive Date: 20050314
  Receipt Date: 20050301
  Transmission Date: 20050727
  Serious: Yes (Hospitalization)
  Sender: FDA-Public Use
  Company Number: JP-ROCHE-397664

PATIENT
  Age: 58 Year
  Sex: Female

DRUGS (2)
  1. TAMIFLU [Suspect]
     Route: 048
     Dates: start: 20050208, end: 20050209
  2. ASPIRIN [Concomitant]
     Route: 048
     Dates: start: 20050208, end: 20050208

REACTIONS (4)
  - ENTEROCOLITIS HAEMORRHAGIC [None]
  - HAEMATOCHEZIA [None]
  - INFLAMMATION [None]
  - INTESTINAL ISCHAEMIA [None]
